FAERS Safety Report 7930660-X (Version None)
Quarter: 2011Q4

REPORT INFORMATION
  Report Type: 
  Country: None (occurrence: None)
  Receive Date: 20111117
  Receipt Date: 20111117
  Transmission Date: 20120403
  Serious: Yes (Other)
  Sender: FDA-Public Use
  Company Number: None

PATIENT
  Age: 46 Year
  Sex: Female
  Weight: 93.8946 kg

DRUGS (1)
  1. CIPROFLOXACIN HCL [Suspect]
     Indication: UPPER RESPIRATORY TRACT INFECTION
     Dosage: 500 MG TAB PO
     Route: 048
     Dates: start: 20111011

REACTIONS (6)
  - BLOOD BLISTER [None]
  - PAIN IN EXTREMITY [None]
  - VASCULITIS NECROTISING [None]
  - SKIN DISCOLOURATION [None]
  - ERYTHEMA [None]
  - OEDEMA PERIPHERAL [None]
